FAERS Safety Report 25515014 (Version 2)
Quarter: 2025Q3

REPORT INFORMATION
  Report Type: Spontaneous
  Country: CA (occurrence: CA)
  Receive Date: 20250703
  Receipt Date: 20250729
  Transmission Date: 20251020
  Serious: Yes (Death, Life-Threatening, Hospitalization, Disabling, Congenital Anomaly, Other)
  Sender: ANI
  Company Number: CA-ANIPHARMA-2025-CA-002088

PATIENT
  Age: 96 Year
  Sex: Female

DRUGS (87)
  1. CANDESARTAN CILEXETIL [Suspect]
     Active Substance: CANDESARTAN CILEXETIL
     Indication: Migraine
  2. TRAMADOL HYDROCHLORIDE [Suspect]
     Active Substance: TRAMADOL HYDROCHLORIDE
  3. CORTISONE ACETATE [Suspect]
     Active Substance: CORTISONE ACETATE
  4. CALCIUM ASCORBATE [Suspect]
     Active Substance: CALCIUM ASCORBATE
  5. CELECOXIB [Suspect]
     Active Substance: CELECOXIB
  6. ACTEMRA [Suspect]
     Active Substance: TOCILIZUMAB
     Route: 042
  7. ADALIMUMAB [Suspect]
     Active Substance: ADALIMUMAB
     Route: 058
  8. AIMOVIG [Suspect]
     Active Substance: ERENUMAB-AOOE
  9. ALENDRONATE SODIUM\CHOLECALCIFEROL [Suspect]
     Active Substance: ALENDRONATE SODIUM\CHOLECALCIFEROL
  10. APREMILAST [Suspect]
     Active Substance: APREMILAST
  11. ARAVA [Suspect]
     Active Substance: LEFLUNOMIDE
  12. HYDROCORTISONE ACETATE [Suspect]
     Active Substance: HYDROCORTISONE ACETATE
  13. ATOMOXETINE HYDROCHLORIDE [Suspect]
     Active Substance: ATOMOXETINE HYDROCHLORIDE
  14. BERINERT [Suspect]
     Active Substance: HUMAN C1-ESTERASE INHIBITOR
  15. BOTULINUM TOXIN TYPE A [Suspect]
     Active Substance: BOTULINUM TOXIN TYPE A
  16. BUPRENORPHINE [Suspect]
     Active Substance: BUPRENORPHINE
  17. BUTRANS [Suspect]
     Active Substance: BUPRENORPHINE
  18. CALCIUM GLUBIONATE [Suspect]
     Active Substance: CALCIUM GLUBIONATE
  19. CALCIUM LACTATE [Suspect]
     Active Substance: CALCIUM LACTATE
  20. CERTOLIZUMAB PEGOL [Suspect]
     Active Substance: CERTOLIZUMAB PEGOL
     Route: 058
  21. CHLORHEXIDINE GLUCONATE [Suspect]
     Active Substance: CHLORHEXIDINE GLUCONATE
  22. CIMZIA [Suspect]
     Active Substance: CERTOLIZUMAB PEGOL
     Route: 058
  23. PANTOPRAZOLE SODIUM [Suspect]
     Active Substance: PANTOPRAZOLE SODIUM
  24. COSENTYX [Suspect]
     Active Substance: SECUKINUMAB
  25. CYCLOBENZAPRINE [Suspect]
     Active Substance: CYCLOBENZAPRINE
  26. DESOXIMETASONE [Suspect]
     Active Substance: DESOXIMETASONE
     Route: 058
  27. DICLOFENAC DIETHYLAMINE [Suspect]
     Active Substance: DICLOFENAC DIETHYLAMINE
  28. DICLOFENAC POTASSIUM [Suspect]
     Active Substance: DICLOFENAC POTASSIUM
  29. DICLOFENAC SODIUM [Suspect]
     Active Substance: DICLOFENAC SODIUM
  30. DOMPERIDONE MALEATE [Suspect]
     Active Substance: DOMPERIDONE MALEATE
  31. ENBREL [Suspect]
     Active Substance: ETANERCEPT
     Route: 058
  32. FINACEA [Suspect]
     Active Substance: AZELAIC ACID
  33. FLUMETHASONE [Suspect]
     Active Substance: FLUMETHASONE
  34. PREPARATION H NOS [Suspect]
     Active Substance: UNSPECIFIED INGREDIENT
  35. FLUMETHASONE PIVALATE [Suspect]
     Active Substance: FLUMETHASONE PIVALATE
     Route: 058
  36. FOLIC ACID [Suspect]
     Active Substance: FOLIC ACID
  37. FOSAMAX [Suspect]
     Active Substance: ALENDRONATE SODIUM
     Route: 048
  38. GOLD [Suspect]
     Active Substance: GOLD
  39. GOLD SODIUM THIOMALATE [Suspect]
     Active Substance: GOLD SODIUM THIOMALATE
     Route: 030
  40. GOLIMUMAB [Suspect]
     Active Substance: GOLIMUMAB
     Route: 058
  41. HYDROMORPHONE [Suspect]
     Active Substance: HYDROMORPHONE
  42. HYDROXYCHLOROQUINE [Suspect]
     Active Substance: HYDROXYCHLOROQUINE
     Route: 048
  43. INFLIXIMAB [Suspect]
     Active Substance: INFLIXIMAB
  44. KEVZARA [Suspect]
     Active Substance: SARILUMAB
  45. METHOTREXATE [Suspect]
     Active Substance: METHOTREXATE
     Route: 048
  46. LAMICTAL [Suspect]
     Active Substance: LAMOTRIGINE
     Route: 048
  47. LAMOTRIGINE [Suspect]
     Active Substance: LAMOTRIGINE
     Route: 048
  48. LEFLUNOMIDE [Suspect]
     Active Substance: LEFLUNOMIDE
  49. LEVOMILNACIPRAN [Suspect]
     Active Substance: LEVOMILNACIPRAN
  50. MAGNESIUM CITRATE [Suspect]
     Active Substance: MAGNESIUM CITRATE
  51. METHYLPREDNISOLONE SODIUM SUCCINATE [Suspect]
     Active Substance: METHYLPREDNISOLONE SODIUM SUCCINATE
  52. MYRBETRIQ [Suspect]
     Active Substance: MIRABEGRON
  53. NAPROSYN [Suspect]
     Active Substance: NAPROXEN
  54. NAPROXEN [Suspect]
     Active Substance: NAPROXEN
  55. NUCALA [Suspect]
     Active Substance: MEPOLIZUMAB
  56. PREDNISONE [Suspect]
     Active Substance: PREDNISONE
     Route: 048
  57. ORENCIA [Suspect]
     Active Substance: ABATACEPT
     Route: 042
  58. OXYCODONE [Suspect]
     Active Substance: OXYCODONE
  59. OXYCODONE TEREPHTHALATE [Suspect]
     Active Substance: OXYCODONE TEREPHTHALATE
  60. PHTHALYLSULFATHIAZOLE [Suspect]
     Active Substance: PHTHALYLSULFATHIAZOLE
     Route: 048
  61. PREPARATION H NOS [Suspect]
     Active Substance: UNSPECIFIED INGREDIENT
  62. PSEUDOEPHEDRINE HYDROCHLORIDE [Suspect]
     Active Substance: PSEUDOEPHEDRINE HYDROCHLORIDE
  63. RANITIDINE HYDROCHLORIDE [Suspect]
     Active Substance: RANITIDINE HYDROCHLORIDE
  64. CETIRIZINE HYDROCHLORIDE [Suspect]
     Active Substance: CETIRIZINE HYDROCHLORIDE
  65. CETIRIZINE HYDROCHLORIDE\PSEUDOEPHEDRINE HYDROCHLORIDE [Suspect]
     Active Substance: CETIRIZINE HYDROCHLORIDE\PSEUDOEPHEDRINE HYDROCHLORIDE
  66. REMICADE [Suspect]
     Active Substance: INFLIXIMAB
     Route: 042
  67. RITUXIMAB [Suspect]
     Active Substance: RITUXIMAB
  68. DIETARY SUPPLEMENT\HERBALS [Suspect]
     Active Substance: DIETARY SUPPLEMENT\HERBALS
  69. SIMPONI [Suspect]
     Active Substance: GOLIMUMAB
     Route: 058
  70. GOLD SODIUM THIOMALATE [Suspect]
     Active Substance: GOLD SODIUM THIOMALATE
  71. STELARA [Suspect]
     Active Substance: USTEKINUMAB
     Route: 058
  72. SULFASALAZINE [Suspect]
     Active Substance: SULFASALAZINE
     Route: 048
  73. TOCILIZUMAB [Suspect]
     Active Substance: TOCILIZUMAB
     Route: 058
  74. TOPIRAMATE [Suspect]
     Active Substance: TOPIRAMATE
  75. USTEKINUMAB [Suspect]
     Active Substance: USTEKINUMAB
     Route: 058
  76. VITAMIN D3 [Suspect]
     Active Substance: CHOLECALCIFEROL
  77. XELJANZ [Suspect]
     Active Substance: TOFACITINIB CITRATE
  78. PREDNISONE [Suspect]
     Active Substance: PREDNISONE
  79. BETAMETHASONE [Suspect]
     Active Substance: BETAMETHASONE
  80. ERELZI [Suspect]
     Active Substance: ETANERCEPT-SZZS
     Route: 058
  81. TOFACITINIB [Suspect]
     Active Substance: TOFACITINIB
  82. ACTEMRA [Suspect]
     Active Substance: TOCILIZUMAB
     Route: 042
  83. COSENTYX [Suspect]
     Active Substance: SECUKINUMAB
  84. CETIRIZINE HYDROCHLORIDE [Suspect]
     Active Substance: CETIRIZINE HYDROCHLORIDE
  85. PHENYLEPHRINE HYDROCHLORIDE [Suspect]
     Active Substance: PHENYLEPHRINE HYDROCHLORIDE
  86. VITAMIN C [Suspect]
     Active Substance: ASCORBIC ACID
  87. RAMIPRIL [Suspect]
     Active Substance: RAMIPRIL
     Route: 042

REACTIONS (16)
  - Hepatic cirrhosis [Not Recovered/Not Resolved]
  - Hepatic enzyme increased [Not Recovered/Not Resolved]
  - Hypercholesterolaemia [Not Recovered/Not Resolved]
  - Hypersensitivity [Not Recovered/Not Resolved]
  - Hypertension [Not Recovered/Not Resolved]
  - Ill-defined disorder [Not Recovered/Not Resolved]
  - Impaired healing [Not Recovered/Not Resolved]
  - Product use in unapproved indication [Not Recovered/Not Resolved]
  - Gastrointestinal disorder [Fatal]
  - Gastrooesophageal reflux disease [Fatal]
  - General physical health deterioration [Not Recovered/Not Resolved]
  - Glossodynia [Not Recovered/Not Resolved]
  - Grip strength decreased [Not Recovered/Not Resolved]
  - Hand deformity [Not Recovered/Not Resolved]
  - Headache [Not Recovered/Not Resolved]
  - Helicobacter infection [Not Recovered/Not Resolved]
